FAERS Safety Report 18164660 (Version 9)
Quarter: 2021Q1

REPORT INFORMATION
  Report Type: Spontaneous
  Country: US (occurrence: US)
  Receive Date: 20200818
  Receipt Date: 20210216
  Transmission Date: 20210419
  Serious: No
  Sender: FDA-Public Use
  Company Number: US-UNITED THERAPEUTICS-UNT-2020-011892

PATIENT
  Age: 58 Year
  Sex: Female
  Weight: 87.08 kg

DRUGS (15)
  1. TYVASO [Suspect]
     Active Substance: TREPROSTINIL
     Dosage: UNK
  2. TYVASO [Suspect]
     Active Substance: TREPROSTINIL
     Indication: PULMONARY ARTERIAL HYPERTENSION
     Dosage: UNK
     Dates: start: 20200801
  3. TYVASO [Suspect]
     Active Substance: TREPROSTINIL
     Dosage: 54 ?G, QD
  4. TYVASO [Suspect]
     Active Substance: TREPROSTINIL
     Dosage: 6 ?G, QID
  5. TADALAFIL. [Concomitant]
     Active Substance: TADALAFIL
     Indication: PRODUCT USED FOR UNKNOWN INDICATION
     Dosage: UNK
     Route: 065
  6. OXYGEN. [Concomitant]
     Active Substance: OXYGEN
     Indication: PRODUCT USED FOR UNKNOWN INDICATION
     Dosage: UNK
     Route: 065
     Dates: start: 2020
  7. TYVASO [Suspect]
     Active Substance: TREPROSTINIL
     Dosage: 60 ?G, QID
     Dates: start: 20200901
  8. TYVASO [Suspect]
     Active Substance: TREPROSTINIL
     Dosage: 60 ?G, TID
  9. OXYGEN. [Concomitant]
     Active Substance: OXYGEN
     Dosage: 4?4.5 LITERS AT NIGHT
     Route: 065
  10. TYVASO [Suspect]
     Active Substance: TREPROSTINIL
     Indication: INTERSTITIAL LUNG DISEASE
     Dosage: 18?54 ?G, QID
  11. TYVASO [Suspect]
     Active Substance: TREPROSTINIL
     Dosage: UNK
  12. TYVASO [Suspect]
     Active Substance: TREPROSTINIL
     Dosage: 54 ?G, QID
     Dates: start: 20200925
  13. TYVASO [Suspect]
     Active Substance: TREPROSTINIL
     Dosage: 72 ?G, QID
  14. DILTIAZEM. [Concomitant]
     Active Substance: DILTIAZEM
     Indication: PRODUCT USED FOR UNKNOWN INDICATION
     Dosage: UNK
     Route: 065
  15. OXYGEN. [Concomitant]
     Active Substance: OXYGEN
     Dosage: 3.5 L
     Route: 065
     Dates: start: 20210207

REACTIONS (17)
  - Productive cough [Not Recovered/Not Resolved]
  - Off label use [Unknown]
  - Diarrhoea [Not Recovered/Not Resolved]
  - Sinus disorder [Unknown]
  - Upper respiratory tract infection [Recovered/Resolved]
  - Paranasal sinus hypersecretion [Not Recovered/Not Resolved]
  - Headache [Not Recovered/Not Resolved]
  - Dyspnoea [Not Recovered/Not Resolved]
  - Sinusitis [Recovered/Resolved]
  - Muscle spasms [Unknown]
  - Bronchitis [Unknown]
  - Therapy non-responder [Unknown]
  - Rhinorrhoea [Not Recovered/Not Resolved]
  - Cough [Not Recovered/Not Resolved]
  - Dizziness [Recovered/Resolved]
  - Product dose omission issue [Unknown]
  - Alopecia [Unknown]

NARRATIVE: CASE EVENT DATE: 2020
